FAERS Safety Report 5996275-8 (Version None)
Quarter: 2008Q4

REPORT INFORMATION
  Report Type: 
  Country: None (occurrence: None)
  Receive Date: 20081212
  Receipt Date: 20081028
  Transmission Date: 20090506
  Serious: No
  Sender: FDA-Public Use
  Company Number: US-ABBOTT-08P-163-0481678-00

PATIENT
  Sex: Female

DRUGS (4)
  1. HUMIRA [Suspect]
     Indication: CROHN'S DISEASE
     Route: 058
     Dates: end: 20080901
  2. HUMIRA [Suspect]
     Route: 058
  3. HUMIRA [Suspect]
     Route: 058
     Dates: start: 20071001
  4. HUMIRA [Suspect]
     Route: 058
     Dates: end: 20080901

REACTIONS (4)
  - COUGH [None]
  - RECTAL HAEMORRHAGE [None]
  - RECTAL POLYP [None]
  - SINUS CONGESTION [None]
